FAERS Safety Report 23011087 (Version 2)
Quarter: 2023Q4

REPORT INFORMATION
  Report Type: Report from Study
  Country: RU (occurrence: RU)
  Receive Date: 20230929
  Receipt Date: 20231011
  Transmission Date: 20240110
  Serious: Yes (Other)
  Sender: FDA-Public Use
  Company Number: RU-002147023-NVSC2023RU208896

PATIENT
  Age: 74 Year
  Sex: Female

DRUGS (4)
  1. SECUKINUMAB [Suspect]
     Active Substance: SECUKINUMAB
     Indication: Psoriatic arthropathy
     Dosage: 150 MG ONCE PER WEEK THEN ONCE PER 4 WEEK
     Route: 058
     Dates: start: 202306
  2. SECUKINUMAB [Suspect]
     Active Substance: SECUKINUMAB
     Dosage: 300 MG ONCE PER 4 WEEKS
     Route: 065
  3. METHOTREXATE [Concomitant]
     Active Substance: METHOTREXATE
     Indication: Psoriatic arthropathy
     Dosage: 20 MG PER WEEK
     Route: 065
     Dates: start: 202306
  4. METHOTREXATE [Concomitant]
     Active Substance: METHOTREXATE
     Dosage: 15 MG PER WEEK
     Route: 065

REACTIONS (3)
  - Atrial fibrillation [Unknown]
  - Psoriasis [Unknown]
  - Joint swelling [Unknown]

NARRATIVE: CASE EVENT DATE: 20230901
